FAERS Safety Report 6698111-3 (Version None)
Quarter: 2010Q2

REPORT INFORMATION
  Report Type: 
  Country: None (occurrence: None)
  Receive Date: 20100427
  Receipt Date: 20100421
  Transmission Date: 20101027
  Serious: Yes (Other)
  Sender: FDA-Public Use
  Company Number: GB-PFIZER INC-2010050146

PATIENT
  Age: 95 Year
  Sex: Female

DRUGS (2)
  1. TOVIAZ [Suspect]
     Indication: HYPERTONIC BLADDER
     Dosage: 4 MG, 1X/DAY
  2. BUTRANS [Suspect]
     Dosage: UNK
     Route: 062

REACTIONS (1)
  - HYPOTENSION [None]
